FAERS Safety Report 9802797 (Version 1)
Quarter: 2014Q1

REPORT INFORMATION
  Report Type: Spontaneous
  Country: US (occurrence: None)
  Receive Date: 20140106
  Receipt Date: 20140106
  Transmission Date: 20141002
  Serious: No
  Sender: FDA-Public Use
  Company Number: None

PATIENT
  Age: 26 Year
  Sex: Female
  Weight: 55.79 kg

DRUGS (3)
  1. MARIO BADESCU [Suspect]
     Indication: ECZEMA
  2. MARIO BADESCU [Suspect]
     Indication: DERMATITIS
  3. MARIO BADESCU [Suspect]
     Indication: ROSACEA

REACTIONS (7)
  - Skin irritation [None]
  - Pruritus [None]
  - Erythema [None]
  - Hyperaesthesia [None]
  - Drug withdrawal syndrome [None]
  - Product label issue [None]
  - Therapy cessation [None]
